FAERS Safety Report 6222249-8 (Version None)
Quarter: 2009Q2

REPORT INFORMATION
  Report Type: 
  Country: None (occurrence: None)
  Receive Date: 20090611
  Receipt Date: 20090603
  Transmission Date: 20091009
  Serious: Yes (Hospitalization, Other)
  Sender: FDA-Public Use
  Company Number: CA-ASTRAZENECA-2009UW14149

PATIENT
  Sex: Female

DRUGS (5)
  1. CRESTOR [Suspect]
     Route: 048
     Dates: start: 20080201
  2. COZAAR [Concomitant]
     Dates: start: 20080201
  3. OMEPRAZOLE [Concomitant]
  4. NORVASC [Concomitant]
  5. DETROL LA [Concomitant]

REACTIONS (3)
  - CYSTITIS [None]
  - POLLAKIURIA [None]
  - RENAL FAILURE [None]
